FAERS Safety Report 5367838-8 (Version None)
Quarter: 2007Q2

REPORT INFORMATION
  Report Type: 
  Country: None (occurrence: None)
  Receive Date: 20070622
  Receipt Date: 20070611
  Transmission Date: 20071010
  Serious: Yes (Death, Other)
  Sender: FDA-Public Use
  Company Number: US-PFIZER INC-2007047959

PATIENT
  Sex: Female
  Weight: 126.1 kg

DRUGS (4)
  1. GEODON [Suspect]
     Indication: MANIA
  2. ATIVAN [Suspect]
     Dosage: DAILY DOSE:2MG
  3. CATAPRES [Concomitant]
  4. ANTIHYPERTENSIVES [Concomitant]

REACTIONS (4)
  - COUGH [None]
  - DEATH [None]
  - IMPULSIVE BEHAVIOUR [None]
  - SCREAMING [None]
